FAERS Safety Report 7001209-3 (Version None)
Quarter: 2010Q3

REPORT INFORMATION
  Report Type: 
  Country: None (occurrence: None)
  Receive Date: 20100920
  Receipt Date: 20070618
  Transmission Date: 20110219
  Serious: Yes (Other)
  Sender: FDA-Public Use
  Company Number: US-ASTRAZENECA-2006UW23109

PATIENT
  Age: 720 Month
  Sex: Female
  Weight: 99.8 kg

DRUGS (31)
  1. SEROQUEL [Suspect]
     Indication: HALLUCINATION, AUDITORY
     Route: 048
     Dates: start: 20050808, end: 20060119
  2. SEROQUEL [Suspect]
     Indication: INSOMNIA
     Route: 048
     Dates: start: 20050808, end: 20060119
  3. SEROQUEL [Suspect]
     Indication: HEADACHE
     Route: 048
     Dates: start: 20050808, end: 20060119
  4. SEROQUEL [Suspect]
     Dosage: 100MG-200MG
     Route: 048
     Dates: start: 20050916
  5. SEROQUEL [Suspect]
     Dosage: 100MG-200MG
     Route: 048
     Dates: start: 20050916
  6. SEROQUEL [Suspect]
     Dosage: 100MG-200MG
     Route: 048
     Dates: start: 20050916
  7. TRILAFON [Concomitant]
  8. ZYPREXA [Concomitant]
  9. UNSPECIFIED [Concomitant]
  10. ALLEGRA [Concomitant]
     Route: 048
     Dates: start: 20050330
  11. ARIMIDEX [Concomitant]
     Route: 048
     Dates: start: 20050330
  12. ASPIRIN [Concomitant]
     Dosage: 81MG-325MG
     Dates: start: 20021102
  13. ATARAX [Concomitant]
     Dosage: 10MG-25MG
     Dates: start: 20040907
  14. CELEBREX [Concomitant]
     Dates: start: 20051228
  15. CYPROHEPTADINE HYDROCHLORIDE [Concomitant]
     Route: 048
     Dates: start: 20050330
  16. DIAZEPAM [Concomitant]
     Dosage: 5MG-10MG
     Dates: start: 20051228
  17. DIOVAN [Concomitant]
     Dosage: 80MG-160MG
     Dates: start: 20050330
  18. DOCUSATE SODIUM [Concomitant]
     Dates: start: 20051228
  19. FOLIC ACID [Concomitant]
     Dates: start: 20050228
  20. LEXAPRO [Concomitant]
     Dosage: 10MG-20MG
     Dates: start: 20050228
  21. NEURONTIN [Concomitant]
     Dosage: 100MG-1200MG
     Dates: start: 20050822
  22. NEXIUM [Concomitant]
     Dates: start: 20050330
  23. NORTRIPTYLINE HCL [Concomitant]
     Dosage: 10MG-25MG
     Dates: start: 20050330
  24. NORVASC [Concomitant]
     Dosage: 5MG-20MG
     Dates: start: 20050330
  25. PARAFON [Concomitant]
     Indication: PAIN
     Dates: start: 20060530
  26. PARAFON [Concomitant]
     Indication: MUSCLE SPASMS
     Dates: start: 20060530
  27. QUININE SULFATE [Concomitant]
     Dates: start: 20050520
  28. REGLAN [Concomitant]
     Dates: start: 20040701
  29. THEOPHYLLINE [Concomitant]
     Indication: CHRONIC OBSTRUCTIVE PULMONARY DISEASE
     Dates: start: 20050330
  30. VYTORIN [Concomitant]
     Dosage: 10MG-40MG
     Dates: start: 20050901
  31. ZELNORM [Concomitant]
     Dates: start: 20060601

REACTIONS (2)
  - DIABETES MELLITUS [None]
  - PANCREATITIS [None]
